FAERS Safety Report 20779200 (Version 3)
Quarter: 2022Q4

REPORT INFORMATION
  Report Type: Report from Study
  Country: IT (occurrence: IT)
  Receive Date: 20220503
  Receipt Date: 20221019
  Transmission Date: 20230113
  Serious: Yes (Life-Threatening, Hospitalization, Other)
  Sender: FDA-Public Use
  Company Number: IT-002147023-NVSC2022IT094113

PATIENT

DRUGS (4)
  1. RUXOLITINIB [Suspect]
     Active Substance: RUXOLITINIB
     Indication: Myelofibrosis
     Dosage: 30 UNK, QD
     Route: 065
     Dates: start: 20211008
  2. RUXOLITINIB [Suspect]
     Active Substance: RUXOLITINIB
     Dosage: 40 UNK, QD
     Route: 065
     Dates: start: 20211203
  3. RUXOLITINIB [Suspect]
     Active Substance: RUXOLITINIB
     Dosage: UNK, QD
     Route: 065
     Dates: start: 20220404
  4. RUXOLITINIB [Suspect]
     Active Substance: RUXOLITINIB
     Dosage: UNK
     Route: 065
     Dates: end: 20220406

REACTIONS (5)
  - Acute respiratory distress syndrome [Unknown]
  - Aspergillus infection [Unknown]
  - Pneumonia fungal [Unknown]
  - Inappropriate schedule of product administration [Unknown]
  - COVID-19 pneumonia [Not Recovered/Not Resolved]

NARRATIVE: CASE EVENT DATE: 20211008
